FAERS Safety Report 8917672 (Version 2)
Quarter: 2012Q4

REPORT INFORMATION
  Report Type: 
  Country: GB (occurrence: GB)
  Receive Date: 20121120
  Receipt Date: 20121130
  Transmission Date: 20130627
  Serious: Yes (Hospitalization, Other)
  Sender: FDA-Public Use
  Company Number: GB-PFIZER INC-GBWYE357020JAN05

PATIENT
  Age: 47 Year
  Sex: Male

DRUGS (2)
  1. ADVIL [Suspect]
     Indication: HEADACHE
     Dosage: 200 mg, as needed
     Route: 048
     Dates: end: 20041219
  2. WARFARIN [Concomitant]
     Dosage: UNK
     Route: 048
     Dates: end: 200412

REACTIONS (4)
  - Chest pain [Recovering/Resolving]
  - Melaena [Recovering/Resolving]
  - Dyspnoea [Recovering/Resolving]
  - Oesophagitis [Recovering/Resolving]
